FAERS Safety Report 19473070 (Version 2)
Quarter: 2021Q3

REPORT INFORMATION
  Report Type: Report from Study
  Country: US (occurrence: US)
  Receive Date: 20210629
  Receipt Date: 20210715
  Transmission Date: 20211014
  Serious: Yes (Hospitalization)
  Sender: FDA-Public Use
  Company Number: US-BAYER-2021-160886

PATIENT
  Age: 32 Year
  Sex: Female
  Weight: 50.34 kg

DRUGS (7)
  1. TYVASO [Concomitant]
     Active Substance: TREPROSTINIL
     Dosage: 12 BREATHS
  2. ADEMPAS [Suspect]
     Active Substance: RIOCIGUAT
     Indication: PULMONARY ARTERIAL HYPERTENSION
     Dosage: 2.5 MG, TID
     Route: 048
  3. ADEMPAS [Suspect]
     Active Substance: RIOCIGUAT
     Indication: PULMONARY ARTERIAL HYPERTENSION
     Dosage: 2.5 MG, TID
     Route: 048
  4. ADEMPAS [Suspect]
     Active Substance: RIOCIGUAT
     Indication: PULMONARY ARTERIAL HYPERTENSION
     Dosage: UNK
     Route: 048
     Dates: start: 20200113
  5. ORENITRAM [Concomitant]
     Active Substance: TREPROSTINIL
  6. AMBRISENTAN [Concomitant]
     Active Substance: AMBRISENTAN
  7. TYVASO [Concomitant]
     Active Substance: TREPROSTINIL
     Dosage: 9 BREATHS

REACTIONS (8)
  - Blood pressure abnormal [Unknown]
  - Abdominal pain upper [None]
  - Fluid retention [None]
  - Dyspnoea [Unknown]
  - Systemic lupus erythematosus [Unknown]
  - Cough [Unknown]
  - Abdominal pain [None]
  - Chest pain [Unknown]

NARRATIVE: CASE EVENT DATE: 20210615
